FAERS Safety Report 8321292-2 (Version None)
Quarter: 2012Q2

REPORT INFORMATION
  Report Type: 
  Country: None (occurrence: None)
  Receive Date: 20120430
  Receipt Date: 20120424
  Transmission Date: 20120825
  Serious: Yes (Hospitalization, Other)
  Sender: FDA-Public Use
  Company Number: US-BAYER-201039890NA

PATIENT
  Age: 53 Year
  Sex: Female
  Weight: 98 kg

DRUGS (12)
  1. YAZ [Suspect]
     Indication: CONTRACEPTION
     Dosage: UNK
     Route: 048
     Dates: start: 20060801, end: 20070301
  2. YASMIN [Suspect]
     Indication: MENORRHAGIA
     Dosage: UNK
     Dates: start: 20031201, end: 20060201
  3. PERCOCET [Concomitant]
  4. YAZ [Suspect]
     Indication: MENORRHAGIA
     Dosage: UNK
     Dates: start: 20090301, end: 20090701
  5. FLEXERIL [Concomitant]
     Dosage: 10 MG, TID
     Route: 048
  6. LOTENSIN [Concomitant]
     Dosage: 10 MG, QD
  7. TEVETEN [Concomitant]
  8. PREDNISONE [Concomitant]
     Dosage: 20 MG, QD
     Dates: start: 20090615
  9. NAPROSYN [Concomitant]
     Dosage: 500 MG, BID
     Route: 048
  10. SERTRALINE HYDROCHLORIDE [Concomitant]
     Route: 048
  11. YASMIN [Suspect]
     Indication: CONTRACEPTION
     Dosage: UNK
     Route: 048
     Dates: start: 20030101, end: 20030301
  12. TEVETEN HCT [Concomitant]
     Indication: HYPERTENSION
     Dosage: UNK UNK, QD
     Route: 048

REACTIONS (1)
  - DEEP VEIN THROMBOSIS [None]
